FAERS Safety Report 8087699-6 (Version None)
Quarter: 2012Q1

REPORT INFORMATION
  Report Type: 
  Country: None (occurrence: None)
  Receive Date: 20120128
  Receipt Date: 20110613
  Transmission Date: 20120608
  Serious: No
  Sender: FDA-Public Use
  Company Number: US-ABBOTT-11P-163-0721007-00

PATIENT
  Sex: Female

DRUGS (12)
  1. KLOR-CON [Concomitant]
     Indication: PRODUCT USED FOR UNKNOWN INDICATION
  2. RATADINE [Concomitant]
     Indication: PRODUCT USED FOR UNKNOWN INDICATION
  3. HUMIRA [Suspect]
     Indication: PSORIASIS
     Dosage: DAY ONE
     Route: 058
     Dates: start: 20110414
  4. ADVAIR DISKUS 100/50 [Concomitant]
     Indication: ASTHMA
  5. GLUCOSAMINE [Concomitant]
     Indication: PRODUCT USED FOR UNKNOWN INDICATION
     Dosage: TRIPLE STRENGTH 2 DAILY
  6. ASPIRIN [Concomitant]
     Indication: CORONARY ARTERIAL STENT INSERTION
  7. HUMIRA [Suspect]
     Dosage: 40 MG QOW
     Dates: start: 20110401, end: 20110501
  8. SIMVASTATIN [Concomitant]
     Indication: BLOOD CHOLESTEROL INCREASED
  9. SPIRIVA [Concomitant]
     Indication: ASTHMA
  10. AMLODIPINE [Concomitant]
     Indication: HYPERTENSION
  11. ASCORBIC ACID [Concomitant]
     Indication: PRODUCT USED FOR UNKNOWN INDICATION
  12. HYDROCHLOROTHIAZIDE [Concomitant]
     Indication: PRODUCT USED FOR UNKNOWN INDICATION

REACTIONS (4)
  - JOINT SWELLING [None]
  - PRURITUS [None]
  - RASH PAPULAR [None]
  - RASH [None]
